FAERS Safety Report 15976912 (Version 1)
Quarter: 2019Q1

REPORT INFORMATION
  Report Type: Spontaneous
  Country: FI (occurrence: FI)
  Receive Date: 20190218
  Receipt Date: 20190218
  Transmission Date: 20190418
  Serious: Yes (Death, Other)
  Sender: FDA-Public Use
  Company Number: FI-TEVA-2019-FI-1012715

PATIENT
  Age: 16 Year
  Sex: Female

DRUGS (6)
  1. NAPROXEN (TRADE NAME UNKNOWN) [Suspect]
     Active Substance: NAPROXEN
     Indication: PRODUCT USED FOR UNKNOWN INDICATION
     Route: 065
  2. OXAZEPAM (TRADE NAME UNKNOWN) [Suspect]
     Active Substance: OXAZEPAM
     Indication: PRODUCT USED FOR UNKNOWN INDICATION
     Route: 065
  3. CITALOPRAM ORION [Suspect]
     Active Substance: CITALOPRAM HYDROBROMIDE
     Indication: DEPRESSION
     Dosage: 10 MILLIGRAM DAILY;
     Route: 048
     Dates: start: 2018, end: 2018
  4. CITALOPRAM ORION [Suspect]
     Active Substance: CITALOPRAM HYDROBROMIDE
     Dosage: 10 MG, PER DAY
     Route: 048
     Dates: start: 2018, end: 2018
  5. TEMAZEPAM (TRADE NAME UNKNOWN) [Suspect]
     Active Substance: TEMAZEPAM
     Indication: PRODUCT USED FOR UNKNOWN INDICATION
     Route: 065
  6. ZOLPIDEM [Suspect]
     Active Substance: ZOLPIDEM\ZOLPIDEM TARTRATE
     Indication: PRODUCT USED FOR UNKNOWN INDICATION
     Route: 065

REACTIONS (5)
  - Analgesic drug level above therapeutic [Fatal]
  - Drug level above therapeutic [Fatal]
  - Completed suicide [Fatal]
  - Drug abuse [Fatal]
  - Product use issue [Fatal]

NARRATIVE: CASE EVENT DATE: 20180828
